FAERS Safety Report 7233109-8 (Version None)
Quarter: 2011Q1

REPORT INFORMATION
  Report Type: 
  Country: None (occurrence: None)
  Receive Date: 20110119
  Receipt Date: 20110111
  Transmission Date: 20110831
  Serious: Yes (Other)
  Sender: FDA-Public Use
  Company Number: US-AMGEN-USASP2010008125

PATIENT

DRUGS (1)
  1. ENBREL [Suspect]
     Indication: RHEUMATOID ARTHRITIS
     Dosage: 25 MG, 2 TIMES/WK
     Dates: start: 20000922

REACTIONS (6)
  - INFLUENZA [None]
  - COLON CANCER [None]
  - FATIGUE [None]
  - HEADACHE [None]
  - SINUS DISORDER [None]
  - MYALGIA [None]
